FAERS Safety Report 8409633-9 (Version None)
Quarter: 2012Q2

REPORT INFORMATION
  Report Type: 
  Country: None (occurrence: None)
  Receive Date: 20120531
  Receipt Date: 20120531
  Transmission Date: 20120825
  Serious: Yes (Hospitalization)
  Sender: FDA-Public Use
  Company Number: None

PATIENT
  Sex: Female
  Weight: 68.0396 kg

DRUGS (1)
  1. RECLAST [Suspect]
     Indication: OSTEOPOROSIS
     Dosage: 5 MG/100 MI YEARLY TREATMENT INJECTED
     Dates: start: 20120506

REACTIONS (8)
  - DEHYDRATION [None]
  - MALAISE [None]
  - HEART RATE IRREGULAR [None]
  - DIZZINESS [None]
  - CHEST PAIN [None]
  - ASTHENIA [None]
  - PAIN [None]
  - RENAL IMPAIRMENT [None]
